FAERS Safety Report 5381280-5 (Version None)
Quarter: 2007Q3

REPORT INFORMATION
  Report Type: 
  Country: None (occurrence: None)
  Receive Date: 20070702
  Receipt Date: 20070430
  Transmission Date: 20080115
  Serious: Yes (Other)
  Sender: FDA-Public Use
  Company Number: SPV1-2007-01257

PATIENT
  Age: 40 Year
  Sex: Female
  Weight: 87.1 kg

DRUGS (3)
  1. PENTASA [Suspect]
     Indication: COLITIS ULCERATIVE
     Dosage: 500 MG 3XS DAILY, ORAL
     Route: 048
     Dates: start: 20060401, end: 20060901
  2. ASACOL [Suspect]
     Indication: COLITIS ULCERATIVE
     Dosage: 1 TAB 4XS DAILY, ORAL
     Route: 048
     Dates: start: 20050101, end: 20060401
  3. MULTIVITAMIN [Concomitant]

REACTIONS (4)
  - ANAEMIA [None]
  - BLOOD CREATININE INCREASED [None]
  - BLOOD PRESSURE INCREASED [None]
  - NEPHRITIS INTERSTITIAL [None]
